FAERS Safety Report 19912885 (Version 1)
Quarter: 2021Q4

REPORT INFORMATION
  Report Type: Report from Study
  Country: AR (occurrence: AR)
  Receive Date: 20211004
  Receipt Date: 20211004
  Transmission Date: 20220303
  Serious: Yes (Other)
  Sender: FDA-Public Use
  Company Number: AR-SA-SAC20210929001106

PATIENT
  Age: 4 Year
  Sex: Female

DRUGS (1)
  1. SEVELAMER CARBONATE [Suspect]
     Active Substance: SEVELAMER CARBONATE
     Indication: Hyperphosphataemia
     Dosage: 2.4 G
     Route: 048

REACTIONS (2)
  - End stage renal disease [Recovering/Resolving]
  - Product use issue [Unknown]
